FAERS Safety Report 16014238 (Version 1)
Quarter: 2019Q1

REPORT INFORMATION
  Report Type: Spontaneous
  Country: CA (occurrence: CA)
  Receive Date: 20190227
  Receipt Date: 20190227
  Transmission Date: 20190418
  Serious: Yes (Life-Threatening)
  Sender: FDA-Public Use
  Company Number: CA-PFIZER INC-2019081750

PATIENT
  Age: 73 Year
  Sex: Male
  Weight: 107 kg

DRUGS (6)
  1. HEPARIN LEO [Suspect]
     Active Substance: HEPARIN SODIUM
     Dosage: UNK UNK, SINGLE
     Route: 042
  2. HEPARIN SODIUM. [Suspect]
     Active Substance: HEPARIN SODIUM
     Dosage: UNK
     Route: 042
  3. SODIUM CHLORIDE. [Suspect]
     Active Substance: SODIUM CHLORIDE
     Dosage: 1 DF, SINGLE
     Route: 042
  4. SODIUM CHLORIDE. [Suspect]
     Active Substance: SODIUM CHLORIDE
     Dosage: 1 DF, 1X/DAY
     Route: 042
  5. WATER STERILE PRESERVATIVE FREE [Suspect]
     Active Substance: WATER
     Dosage: 10 ML, SINGLE
     Route: 042
  6. CEFTRIAXONE SODIUM. [Suspect]
     Active Substance: CEFTRIAXONE SODIUM
     Indication: OSTEOMYELITIS
     Dosage: 2 G, 1X/DAY
     Route: 042

REACTIONS (5)
  - Oxygen saturation decreased [Recovered/Resolved]
  - Heart rate increased [Recovered/Resolved]
  - Unresponsive to stimuli [Recovered/Resolved]
  - Blood pressure increased [Recovered/Resolved]
  - Dyspnoea [Recovered/Resolved]
